FAERS Safety Report 4730590-0 (Version None)
Quarter: 2005Q3

REPORT INFORMATION
  Report Type: 
  Country: None (occurrence: None)
  Receive Date: 20050801
  Receipt Date: 20050722
  Transmission Date: 20060218
  Serious: Yes (Other)
  Sender: FDA-Public Use
  Company Number: GB-BRISTOL-MYERS SQUIBB COMPANY-13047782

PATIENT
  Age: 29 Year
  Sex: Male

DRUGS (1)
  1. ABILIFY [Suspect]
     Indication: SCHIZOPHRENIA
     Dosage: DOSE VALUE:  10 TO 30 MG
     Route: 048
     Dates: start: 20050209, end: 20050511

REACTIONS (5)
  - AGGRESSION [None]
  - AGITATION [None]
  - INSOMNIA [None]
  - PARANOIA [None]
  - PERSONALITY CHANGE [None]
